FAERS Safety Report 24648578 (Version 1)
Quarter: 2024Q4

REPORT INFORMATION
  Report Type: Spontaneous
  Country: FR (occurrence: FR)
  Receive Date: 20241121
  Receipt Date: 20241121
  Transmission Date: 20250115
  Serious: Yes (Hospitalization)
  Sender: MYLAN
  Company Number: None

PATIENT
  Age: 29 Year
  Sex: Female

DRUGS (3)
  1. OLANZAPINE [Suspect]
     Active Substance: OLANZAPINE
     Indication: Neurologic somatic symptom disorder
     Dosage: 10 MILLIGRAM
     Route: 048
     Dates: start: 20241021, end: 20241025
  2. AMITRIPTYLINE HYDROCHLORIDE [Suspect]
     Active Substance: AMITRIPTYLINE HYDROCHLORIDE
     Indication: Neurologic somatic symptom disorder
     Dosage: 100 MILLIGRAM, QD
     Route: 048
     Dates: start: 20241014, end: 20241025
  3. AMITRIPTYLINE HYDROCHLORIDE [Suspect]
     Active Substance: AMITRIPTYLINE HYDROCHLORIDE
     Dosage: SINCE OCT-24, PREVIOUS DAILY DOSE NOT SPECIFIED
     Route: 048

REACTIONS (2)
  - Hyperthermia [Recovered/Resolved]
  - Malaise [Recovered/Resolved]

NARRATIVE: CASE EVENT DATE: 20241025
